FAERS Safety Report 8914677 (Version 1)
Quarter: 2012Q4

REPORT INFORMATION
  Report Type: 
  Country: US (occurrence: US)
  Receive Date: 20121119
  Receipt Date: 20121119
  Transmission Date: 20130627
  Serious: No
  Sender: FDA-Public Use
  Company Number: US-009507513-1211USA005998

PATIENT

DRUGS (2)
  1. SAPHRIS [Suspect]
     Dosage: unspecified dose, UNK
     Route: 060
  2. SAPHRIS [Suspect]
     Dosage: 10 mg, bid
     Route: 060

REACTIONS (2)
  - Hallucination [Unknown]
  - Drug ineffective [Unknown]
